FAERS Safety Report 9146116 (Version 2)
Quarter: 2013Q1

REPORT INFORMATION
  Report Type: Report from Study
  Country: US (occurrence: US)
  Receive Date: 20130307
  Receipt Date: 20130314
  Transmission Date: 20140127
  Serious: No
  Sender: FDA-Public Use
  Company Number: US-VERTEX PHARMACEUTICALS INC.-2013-003064

PATIENT
  Sex: Female

DRUGS (7)
  1. VX-950 (TELAPREVIR) [Suspect]
     Indication: HEPATITIS C
     Dosage: 750 MG, TID
     Route: 048
     Dates: start: 20130228
  2. RIBAVIRIN [Suspect]
     Indication: HEPATITIS C
     Dosage: 400 MG, BID
     Route: 048
     Dates: start: 20130228
  3. PEGASYS [Suspect]
     Indication: HEPATITIS C
     Dosage: 180 ?G, QW
     Route: 058
     Dates: start: 20130228
  4. AMLODIPINE BESILATE [Concomitant]
     Dosage: 5 MG, QD
     Route: 048
  5. HYDROCHLOROTHIAZIDE [Concomitant]
     Dosage: 12.5 MG, QD
     Route: 048
  6. KLOR-CON [Concomitant]
     Dosage: 1 DF, QD
     Route: 048
  7. BYSTOLIC [Concomitant]
     Dosage: 5 MG, QD
     Route: 048

REACTIONS (5)
  - Influenza like illness [Unknown]
  - Abdominal discomfort [Unknown]
  - Decreased appetite [Unknown]
  - Chills [Unknown]
  - Rash pruritic [Unknown]
